FAERS Safety Report 19491924 (Version 1)
Quarter: 2021Q3

REPORT INFORMATION
  Report Type: Spontaneous
  Country: DE (occurrence: DE)
  Receive Date: 20210705
  Receipt Date: 20210705
  Transmission Date: 20211014
  Serious: Yes (Other)
  Sender: FDA-Public Use
  Company Number: DE-TEVA-2021-DE-1929166

PATIENT
  Age: 6 Decade
  Sex: Male

DRUGS (4)
  1. OXCARBAZEPIN [Concomitant]
     Active Substance: OXCARBAZEPINE
  2. PHENYTOIN. [Concomitant]
     Active Substance: PHENYTOIN
  3. VALPROINSAEURE?RATIOPHARM [Suspect]
     Active Substance: VALPROIC ACID
     Indication: EPILEPSY
     Dosage: FOR YEARS, DISCONTINUED
     Route: 048
  4. VALPROINSAEURE?RATIOPHARM [Suspect]
     Active Substance: VALPROIC ACID
     Dosage: RESTARTED
     Route: 048
     Dates: start: 2021

REACTIONS (1)
  - Gamma-glutamyltransferase increased [Not Recovered/Not Resolved]
